FAERS Safety Report 18788262 (Version 1)
Quarter: 2021Q1

REPORT INFORMATION
  Report Type: Spontaneous
  Country: US (occurrence: US)
  Receive Date: 20210126
  Receipt Date: 20210126
  Transmission Date: 20210419
  Serious: Yes (Hospitalization)
  Sender: FDA-Public Use
  Company Number: None

PATIENT
  Age: 69 Year
  Sex: Female
  Weight: 116 kg

DRUGS (3)
  1. CHLORPHENIRAMINE/HYDROCODONE [Concomitant]
     Dates: start: 20210125, end: 20210125
  2. PREDNISONE 10 MG [Concomitant]
     Active Substance: PREDNISONE
     Dates: start: 20210125, end: 20210125
  3. BAMLANIVIMAB. [Suspect]
     Active Substance: BAMLANIVIMAB
     Indication: COVID-19
     Dosage: ?          OTHER FREQUENCY:ONCE;?
     Route: 041
     Dates: start: 20210125, end: 20210125

REACTIONS (3)
  - Asthenia [None]
  - Disturbance in attention [None]
  - Dyspnoea [None]

NARRATIVE: CASE EVENT DATE: 20210125
